FAERS Safety Report 22213095 (Version 1)
Quarter: 2023Q2

REPORT INFORMATION
  Report Type: Spontaneous
  Country: US (occurrence: None)
  Receive Date: 20230414
  Receipt Date: 20230414
  Transmission Date: 20230722
  Serious: No
  Sender: FDA-Public Use
  Company Number: None

PATIENT
  Age: 80 Year
  Sex: Female
  Weight: 47.25 kg

DRUGS (11)
  1. ZOLPIDEM [Suspect]
     Active Substance: ZOLPIDEM TARTRATE
     Indication: Drug therapy
  2. EZETIMIBE [Concomitant]
  3. ROSUVASTATIN [Concomitant]
  4. Nefedipine Nexium [Concomitant]
  5. AMBIEN [Concomitant]
  6. Phayzme [Concomitant]
  7. IBUPROFEN [Concomitant]
  8. aspirin free excedrin [Concomitant]
  9. VITAMIN B12 [Concomitant]
     Active Substance: CYANOCOBALAMIN
  10. VITAMIN D [Concomitant]
     Active Substance: VITAMIN D NOS
  11. NEXIUM [Concomitant]
     Active Substance: ESOMEPRAZOLE MAGNESIUM

REACTIONS (3)
  - Mobility decreased [None]
  - Dizziness [None]
  - Product substitution issue [None]
